FAERS Safety Report 21049232 (Version 2)
Quarter: 2022Q4

REPORT INFORMATION
  Report Type: Report from Study
  Country: BR (occurrence: BR)
  Receive Date: 20220706
  Receipt Date: 20221215
  Transmission Date: 20230113
  Serious: Yes (Hospitalization, Other)
  Sender: FDA-Public Use
  Company Number: BR-JNJFOC-20220700163

PATIENT
  Age: 68 Year
  Sex: Female
  Weight: 105 kg

DRUGS (5)
  1. INFLIXIMAB [Suspect]
     Active Substance: INFLIXIMAB
     Indication: Psoriatic arthropathy
     Dosage: THERAPY START DATE ALSO INFORMED AS SINCE 14 YEARS
     Route: 041
     Dates: start: 20081101
  2. COVID-19 VACCINE NOS [Suspect]
     Active Substance: COVID-19 VACCINE NOS
     Indication: Product used for unknown indication
     Route: 065
  3. METHOTREXATE [Concomitant]
     Active Substance: METHOTREXATE
     Indication: Pain
  4. DIPYRONE [Concomitant]
     Active Substance: DIPYRONE
     Indication: Pain
  5. PROPOLIS WAX [Concomitant]
     Active Substance: PROPOLIS WAX
     Indication: Immune system disorder

REACTIONS (12)
  - Cellulitis [Unknown]
  - Hip arthroplasty [Unknown]
  - Plastic surgery [Unknown]
  - Influenza like illness [Unknown]
  - Asthma [Unknown]
  - COVID-19 [Unknown]
  - Urinary tract infection [Unknown]
  - Bronchitis [Unknown]
  - Ill-defined disorder [Unknown]
  - Fatigue [Unknown]
  - Inappropriate schedule of product administration [Unknown]
  - Off label use [Unknown]

NARRATIVE: CASE EVENT DATE: 20220301
